FAERS Safety Report 4313445-5 (Version None)
Quarter: 2004Q1

REPORT INFORMATION
  Report Type: 
  Country: None (occurrence: None)
  Receive Date: 20040305
  Receipt Date: 20040305
  Transmission Date: 20041129
  Serious: Yes (Other)
  Sender: FDA-Public Use
  Company Number: None

PATIENT
  Sex: Female
  Weight: 73.9363 kg

DRUGS (2)
  1. ROCEPHIN [Suspect]
     Dosage: 1 GM Q 24 HOURS IV
     Route: 042
     Dates: start: 20040205, end: 20040304
  2. VANCOMYCIN [Suspect]
     Dosage: 750 MG IV Q 24 HOURS
     Route: 042
     Dates: start: 20040205, end: 20040305

REACTIONS (1)
  - RASH [None]
